FAERS Safety Report 4587201-7 (Version None)
Quarter: 2005Q1

REPORT INFORMATION
  Report Type: 
  Country: None (occurrence: None)
  Receive Date: 20050218
  Receipt Date: 20040319
  Transmission Date: 20050727
  Serious: Yes (Other)
  Sender: FDA-Public Use
  Company Number: US-GLAXOSMITHKLINE-A0504257A

PATIENT
  Age: 28 Year
  Sex: Male

DRUGS (2)
  1. PAXIL [Suspect]
     Indication: ANXIETY
     Route: 048
     Dates: start: 20030601
  2. PROZAC [Concomitant]
     Indication: DEPRESSION
     Route: 048

REACTIONS (14)
  - ANGER [None]
  - ANXIETY [None]
  - DEPENDENCE [None]
  - DIZZINESS [None]
  - DRUG WITHDRAWAL SYNDROME [None]
  - DYSSTASIA [None]
  - HEADACHE [None]
  - INSOMNIA [None]
  - MOVEMENT DISORDER [None]
  - NAUSEA [None]
  - RESTLESSNESS [None]
  - TREMOR [None]
  - VISION BLURRED [None]
  - VOMITING [None]
